FAERS Safety Report 18054437 (Version 1)
Quarter: 2020Q3

REPORT INFORMATION
  Report Type: Spontaneous
  Country: US (occurrence: US)
  Receive Date: 20200722
  Receipt Date: 20200722
  Transmission Date: 20201103
  Serious: No
  Sender: FDA-Public Use
  Company Number: US-AMGEN-USASP2020117266

PATIENT
  Age: 42 Year
  Sex: Female

DRUGS (4)
  1. UBRELVY [Concomitant]
     Active Substance: UBROGEPANT
     Indication: MIGRAINE
     Dosage: UNK
     Route: 065
  2. SUMATRIPTAN. [Concomitant]
     Active Substance: SUMATRIPTAN
     Dosage: UNK
     Route: 065
  3. AIMOVIG [Suspect]
     Active Substance: ERENUMAB-AOOE
     Indication: MIGRAINE
     Dosage: UNK
     Route: 065
     Dates: start: 2019
  4. AIMOVIG [Suspect]
     Active Substance: ERENUMAB-AOOE
     Dosage: UNK
     Route: 065
     Dates: start: 202005

REACTIONS (2)
  - Drug ineffective [Unknown]
  - Herpes zoster [Unknown]

NARRATIVE: CASE EVENT DATE: 2019
